FAERS Safety Report 4394618-2 (Version None)
Quarter: 2004Q3

REPORT INFORMATION
  Report Type: 
  Country: None (occurrence: None)
  Receive Date: 20040712
  Receipt Date: 20040629
  Transmission Date: 20050211
  Serious: Yes (Other)
  Sender: FDA-Public Use
  Company Number: DE-ROCHE-372750

PATIENT
  Sex: Male

DRUGS (1)
  1. ROFERON-A [Suspect]
     Route: 065
     Dates: start: 19980515

REACTIONS (1)
  - AUTOIMMUNE THYROIDITIS [None]
